FAERS Safety Report 5316066-0 (Version None)
Quarter: 2007Q2

REPORT INFORMATION
  Report Type: 
  Country: None (occurrence: None)
  Receive Date: 20070503
  Receipt Date: 20070423
  Transmission Date: 20071010
  Serious: Yes (Hospitalization, Other)
  Sender: FDA-Public Use
  Company Number: US-ELI_LILLY_AND_COMPANY-US200704005126

PATIENT
  Age: 62 Year
  Sex: Male

DRUGS (1)
  1. HUMATROPE [Suspect]
     Dosage: UNK, UNK
     Dates: start: 20040801

REACTIONS (9)
  - CARDIAC FAILURE [None]
  - CARDIAC INFECTION [None]
  - CARDIOMEGALY [None]
  - CONFUSIONAL STATE [None]
  - DEPRESSED MOOD [None]
  - DYSPNOEA [None]
  - EJECTION FRACTION DECREASED [None]
  - PNEUMONIA [None]
  - STRESS [None]
